FAERS Safety Report 6564577-2 (Version None)
Quarter: 2010Q1

REPORT INFORMATION
  Report Type: 
  Country: None (occurrence: None)
  Receive Date: 20100201
  Receipt Date: 20100119
  Transmission Date: 20100710
  Serious: Yes (Hospitalization)
  Sender: FDA-Public Use
  Company Number: PHHY2010GB04040

PATIENT
  Sex: Male

DRUGS (1)
  1. CLOZARIL [Suspect]
     Indication: SCHIZOPHRENIA
     Dosage: UNK
     Dates: start: 19980216

REACTIONS (13)
  - DEHYDRATION [None]
  - GLOMERULAR FILTRATION RATE DECREASED [None]
  - LOCALISED INFECTION [None]
  - LOWER LIMB FRACTURE [None]
  - NEUTROPHIL COUNT DECREASED [None]
  - RENAL FAILURE [None]
  - RENAL IMPAIRMENT [None]
  - SEPSIS [None]
  - SURGERY [None]
  - SURGICAL FAILURE [None]
  - TRANSFUSION [None]
  - WHEELCHAIR USER [None]
  - WHITE BLOOD CELL COUNT DECREASED [None]
